FAERS Safety Report 6420621-4 (Version None)
Quarter: 2009Q4

REPORT INFORMATION
  Report Type: 
  Country: None (occurrence: None)
  Receive Date: 20091027
  Receipt Date: 20091020
  Transmission Date: 20100525
  Serious: Yes (Hospitalization)
  Sender: FDA-Public Use
  Company Number: TPA2009A03293

PATIENT
  Age: 7 Decade
  Sex: Female

DRUGS (1)
  1. ULORIC [Suspect]
     Indication: GOUT
     Dosage: 40 MG, 1 IN 1 D;  80 MG, 1 IN 1 D, PER ORAL
     Route: 048

REACTIONS (3)
  - CELLULITIS [None]
  - JOINT SWELLING [None]
  - ULCER [None]
